FAERS Safety Report 19795947 (Version 2)
Quarter: 2021Q4

REPORT INFORMATION
  Report Type: Other
  Country: MX (occurrence: None)
  Receive Date: 20210907
  Receipt Date: 20211110
  Transmission Date: 20220303
  Serious: Yes (Other)
  Sender: FDA-Public Use
  Company Number: MX-ROCHE-2801557

PATIENT
  Age: 42 Year
  Sex: Female
  Weight: 62 kg

DRUGS (3)
  1. OCREVUS [Suspect]
     Active Substance: OCRELIZUMAB
     Indication: Multiple sclerosis
     Route: 042
     Dates: start: 20190826
  2. ACYCLOVIR [Concomitant]
     Active Substance: ACYCLOVIR
  3. RIBAVIRIN [Concomitant]
     Active Substance: RIBAVIRIN

REACTIONS (16)
  - Coxsackie viral infection [Not Recovered/Not Resolved]
  - Neuralgia [Not Recovered/Not Resolved]
  - Sensory disturbance [Not Recovered/Not Resolved]
  - Drug hypersensitivity [Not Recovered/Not Resolved]
  - Throat irritation [Recovered/Resolved]
  - Throat irritation [Recovered/Resolved]
  - Cough [Recovered/Resolved]
  - Feeling hot [Recovered/Resolved]
  - Swelling face [Recovered/Resolved]
  - Paraesthesia [Recovered/Resolved]
  - Hyperaesthesia [Not Recovered/Not Resolved]
  - Pharyngeal injury [Not Recovered/Not Resolved]
  - Eye swelling [Not Recovered/Not Resolved]
  - Cough [Not Recovered/Not Resolved]
  - Throat irritation [Not Recovered/Not Resolved]
  - Coxsackie viral infection [Not Recovered/Not Resolved]

NARRATIVE: CASE EVENT DATE: 20210201
